FAERS Safety Report 5457498-X (Version None)
Quarter: 2007Q3

REPORT INFORMATION
  Report Type: 
  Country: None (occurrence: None)
  Receive Date: 20070918
  Receipt Date: 20070305
  Transmission Date: 20080115
  Serious: No
  Sender: FDA-Public Use
  Company Number: US-ASTRAZENECA-2007UW04201

PATIENT
  Age: 37 Year
  Sex: Female
  Weight: 45.4 kg

DRUGS (1)
  1. SEROQUEL [Suspect]
     Indication: SLEEP DISORDER
     Dosage: TOOK 8-10 50 MG TABLETS
     Route: 048

REACTIONS (5)
  - FALL [None]
  - HALLUCINATION, AUDITORY [None]
  - INTENTIONAL OVERDOSE [None]
  - MEDICATION ERROR [None]
  - PAIN [None]
